FAERS Safety Report 6238226-7 (Version None)
Quarter: 2009Q2

REPORT INFORMATION
  Report Type: 
  Country: None (occurrence: None)
  Receive Date: 20090617
  Receipt Date: 20090617
  Transmission Date: 20091009
  Serious: No
  Sender: FDA-Public Use
  Company Number: None

PATIENT
  Age: 45 Year
  Sex: Female
  Weight: 68.0396 kg

DRUGS (2)
  1. LEVAQUIN [Suspect]
     Indication: INFECTION
     Dosage: ? 1 TWICE DAILY
     Dates: start: 20061201, end: 20061211
  2. LEVAQUIN [Suspect]
     Indication: SINUSITIS
     Dosage: ? 1 TWICE DAILY
     Dates: start: 20061201, end: 20061211

REACTIONS (3)
  - ARTHRALGIA [None]
  - PAIN IN EXTREMITY [None]
  - TENDON PAIN [None]
